FAERS Safety Report 9779700 (Version 2)
Quarter: 2014Q1

REPORT INFORMATION
  Report Type: Spontaneous
  Country: US (occurrence: US)
  Receive Date: 20131223
  Receipt Date: 20140124
  Transmission Date: 20141002
  Serious: Yes (Death, Hospitalization)
  Sender: FDA-Public Use
  Company Number: US-B.I. PHARMACEUTICALS,INC./RIDGEFIELD-2013-BI-43430BP

PATIENT
  Age: 89 Year
  Sex: Female
  Weight: 56.7 kg

DRUGS (12)
  1. PRADAXA [Suspect]
     Indication: ATRIAL FLUTTER
     Dosage: 300 MG
     Dates: start: 20110602, end: 20110622
  2. PRADAXA [Suspect]
     Indication: ATRIAL FIBRILLATION
  3. LIPITOR [Concomitant]
     Dosage: 20 MG
     Route: 048
  4. LOPRESSOR [Concomitant]
     Dosage: 50 MG
  5. NEXIUM [Concomitant]
     Dosage: 40 MG
     Route: 048
  6. SYNTHROID [Concomitant]
     Dosage: 0.05 MG
     Route: 048
  7. LASIX [Concomitant]
     Dosage: 40 MG
     Route: 048
  8. MVI [Concomitant]
  9. ASA [Concomitant]
     Dosage: 325 MG
     Route: 048
  10. PLAVIX [Concomitant]
     Dosage: 75 MG
  11. LISINOPRIL [Concomitant]
     Dosage: 10 MG
  12. BYSTOLIC [Concomitant]
     Dosage: 5 MG
     Route: 048

REACTIONS (2)
  - Acute respiratory failure [Fatal]
  - Gastrointestinal haemorrhage [Unknown]
